FAERS Safety Report 7864889-6 (Version None)
Quarter: 2011Q4

REPORT INFORMATION
  Report Type: 
  Country: None (occurrence: None)
  Receive Date: 20111028
  Receipt Date: 20100913
  Transmission Date: 20120403
  Serious: No
  Sender: FDA-Public Use
  Company Number: US-GLAXOSMITHKLINE-A0880848A

PATIENT
  Age: 55 Year
  Sex: Female

DRUGS (5)
  1. FEMHRT [Concomitant]
  2. BONIVA [Concomitant]
  3. NEXIUM [Concomitant]
  4. CRESTOR [Concomitant]
  5. ADVAIR DISKUS 100/50 [Suspect]
     Indication: CHRONIC OBSTRUCTIVE PULMONARY DISEASE
     Dosage: 1PUFF TWICE PER DAY
     Route: 055
     Dates: start: 20100401

REACTIONS (1)
  - CANDIDIASIS [None]
